FAERS Safety Report 6271725-0 (Version None)
Quarter: 2009Q3

REPORT INFORMATION
  Report Type: 
  Country: None (occurrence: None)
  Receive Date: 20090716
  Receipt Date: 20090716
  Transmission Date: 20100115
  Serious: Yes (Life-Threatening, Hospitalization)
  Sender: FDA-Public Use
  Company Number: None

PATIENT
  Age: 80 Year
  Sex: Female

DRUGS (1)
  1. CLOPIDOGREL [Suspect]
     Indication: CEREBROVASCULAR ACCIDENT
     Dosage: 75MG PO DAILY
     Route: 048

REACTIONS (3)
  - CEREBRAL HAEMORRHAGE [None]
  - HEADACHE [None]
  - PANCYTOPENIA [None]
